FAERS Safety Report 7404292-6 (Version None)
Quarter: 2011Q2

REPORT INFORMATION
  Report Type: 
  Country: None (occurrence: None)
  Receive Date: 20110408
  Receipt Date: 20110331
  Transmission Date: 20111010
  Serious: Yes (Death, Life-Threatening, Hospitalization)
  Sender: FDA-Public Use
  Company Number: FR-B.I. PHARMACEUTICALS,INC./RIDGEFIELD-2011-FF-00296FF

PATIENT
  Age: 45 Year
  Sex: Male

DRUGS (2)
  1. SIFROL [Suspect]
     Indication: PARKINSON'S DISEASE
     Dosage: DOSE INCREASED IN FEB-2009
     Route: 048
  2. L-DOPA [Concomitant]

REACTIONS (7)
  - MARITAL PROBLEM [None]
  - ASPHYXIA [None]
  - SUICIDE ATTEMPT [None]
  - COMPLETED SUICIDE [None]
  - HYPERSEXUALITY [None]
  - EXHIBITIONISM [None]
  - PATHOLOGICAL GAMBLING [None]
